FAERS Safety Report 9098968 (Version 2)
Quarter: 2013Q1

REPORT INFORMATION
  Report Type: Spontaneous
  Country: US (occurrence: US)
  Receive Date: 20130213
  Receipt Date: 20130311
  Transmission Date: 20140127
  Serious: Yes (Other)
  Sender: FDA-Public Use
  Company Number: US-SANOFI-AVENTIS-2013SA013175

PATIENT
  Age: 59 Year
  Sex: Male
  Weight: 58 kg

DRUGS (9)
  1. ALLEGRA-D [Suspect]
     Indication: ASTHMA
     Dosage: DOSE:1-2 TABS
  2. ALLEGRA-D [Suspect]
     Indication: SELECTIVE IGA IMMUNODEFICIENCY
     Dosage: DOSE:1-2 TABS
  3. ADVAIR [Concomitant]
     Indication: ASTHMA
     Dosage: DOSE:1-2 TABLETS
  4. ADVAIR [Concomitant]
     Indication: BLOOD IMMUNOGLOBULIN A
     Dosage: DOSE:1-2 TABLETS
  5. NASONEX [Concomitant]
     Indication: ASTHMA
     Dosage: DOSE:1-2
  6. NASONEX [Concomitant]
     Indication: BLOOD IMMUNOGLOBULIN A
     Dosage: DOSE:1-2
  7. AZELASTINE HYDROCHLORIDE [Concomitant]
     Indication: ASTHMA
     Dosage: DOSE:1-2
  8. AZELASTINE HYDROCHLORIDE [Concomitant]
     Indication: BLOOD IMMUNOGLOBULIN A
     Dosage: DOSE:1-2
  9. IBUPROFEN [Concomitant]
     Indication: PAIN
     Dosage: DOSAGE:1-2 TABLETS PER DAY AS NEEDED

REACTIONS (3)
  - Pneumonia [Unknown]
  - Infection [Unknown]
  - Off label use [Unknown]
